FAERS Safety Report 10725448 (Version 1)
Quarter: 2015Q1

REPORT INFORMATION
  Report Type: Report from Study
  Country: AU (occurrence: AU)
  Receive Date: 20150121
  Receipt Date: 20150121
  Transmission Date: 20150721
  Serious: Yes (Hospitalization)
  Sender: FDA-Public Use
  Company Number: AU-GLAXOSMITHKLINE-B0813322B

PATIENT
  Age: 75 Year
  Sex: Female
  Weight: 52 kg

DRUGS (33)
  1. PAZOPANIB [Suspect]
     Active Substance: PAZOPANIB
     Indication: RENAL CELL CARCINOMA
     Dosage: UNK, QD
     Route: 048
     Dates: start: 20120621
  2. METOCLOPRAMIDE. [Concomitant]
     Active Substance: METOCLOPRAMIDE
     Indication: PROPHYLAXIS OF NAUSEA AND VOMITING
     Route: 042
     Dates: start: 20120701, end: 20120701
  3. OSELTAMIVIR [Concomitant]
     Active Substance: OSELTAMIVIR
     Indication: INFLUENZA
     Route: 042
     Dates: start: 20120630
  4. SALBUTAMOL [Concomitant]
     Active Substance: ALBUTEROL
  5. LERCANIDIPINE [Concomitant]
     Active Substance: LERCANIDIPINE
     Indication: HYPERTENSION
     Route: 048
     Dates: start: 20050101
  6. PANADOL [Concomitant]
     Active Substance: ACETAMINOPHEN
     Indication: ABDOMINAL PAIN LOWER
     Route: 048
     Dates: start: 20050501
  7. SIMVASTATIN. [Concomitant]
     Active Substance: SIMVASTATIN
  8. MORPHINE [Concomitant]
     Active Substance: MORPHINE
  9. OSELTAMIVIR [Concomitant]
     Active Substance: OSELTAMIVIR
  10. LACTULOSE. [Concomitant]
     Active Substance: LACTULOSE
  11. NEXIUM [Concomitant]
     Active Substance: ESOMEPRAZOLE MAGNESIUM
     Indication: GASTROOESOPHAGEAL REFLUX DISEASE
     Route: 048
     Dates: start: 20100101
  12. THYROXINE [Concomitant]
     Active Substance: LEVOTHYROXINE
     Indication: HYPERTENSION
     Route: 048
     Dates: start: 20070101
  13. MEROPENEM. [Concomitant]
     Active Substance: MEROPENEM
  14. METOCHLOPRAMIDE [Concomitant]
  15. BACTRIM [Concomitant]
     Active Substance: SULFAMETHOXAZOLE\TRIMETHOPRIM
  16. COLOXYL AND SENNA [Concomitant]
  17. NORMAL SALINE [Concomitant]
     Active Substance: SODIUM CHLORIDE
  18. ATENOLOL. [Concomitant]
     Active Substance: ATENOLOL
     Indication: HYPERTENSION
     Route: 048
     Dates: start: 20050101
  19. TEMAZEPAM. [Concomitant]
     Active Substance: TEMAZEPAM
     Indication: SLEEP DISORDER
     Route: 048
     Dates: start: 20000101
  20. PREDNISOLONE. [Concomitant]
     Active Substance: PREDNISOLONE
  21. AZITHROMYCIN [Concomitant]
     Active Substance: AZITHROMYCIN ANHYDROUS
  22. CEFTRIAXONE. [Concomitant]
     Active Substance: CEFTRIAXONE
  23. CODEINE LINCTUS [Concomitant]
     Active Substance: CHLOROFORM\CODEINE PHOSPHATE\DRIMIA MARITIMA BULB
  24. HEPARIN [Concomitant]
     Active Substance: HEPARIN SODIUM
  25. PHOLCODINE [Concomitant]
     Active Substance: PHOLCODINE
  26. URAL [Concomitant]
  27. TRIMETHOPRIM. [Concomitant]
     Active Substance: TRIMETHOPRIM
  28. AMOXICILLIN. [Concomitant]
     Active Substance: AMOXICILLIN
  29. ATENOLOL. [Concomitant]
     Active Substance: ATENOLOL
  30. RESONIUM [Concomitant]
     Active Substance: SODIUM POLYSTYRENE SULFONATE
  31. FRUSEMIDE [Concomitant]
     Active Substance: FUROSEMIDE
  32. CIPROFLOXACIN. [Concomitant]
     Active Substance: CIPROFLOXACIN
  33. ACTRAPID [Concomitant]
     Active Substance: INSULIN HUMAN

REACTIONS (2)
  - Dyspnoea [Recovered/Resolved]
  - Left ventricular dysfunction [Recovered/Resolved]

NARRATIVE: CASE EVENT DATE: 20120911
